FAERS Safety Report 10354979 (Version 1)
Quarter: 2014Q3

REPORT INFORMATION
  Report Type: Spontaneous
  Country: US (occurrence: US)
  Receive Date: 20140731
  Receipt Date: 20140731
  Transmission Date: 20150326
  Serious: Yes (Other)
  Sender: FDA-Public Use
  Company Number: US-TEVA-497466USA

PATIENT
  Age: 54 Year
  Sex: Female
  Weight: 104.42 kg

DRUGS (2)
  1. FENTORA [Suspect]
     Active Substance: FENTANYL CITRATE
     Indication: PLASMA CELL MYELOMA
  2. FENTORA [Suspect]
     Active Substance: FENTANYL CITRATE
     Indication: BONE PAIN

REACTIONS (2)
  - Tooth extraction [Recovered/Resolved]
  - Tumour excision [Recovered/Resolved]

NARRATIVE: CASE EVENT DATE: 20140717
